FAERS Safety Report 11914493 (Version 1)
Quarter: 2016Q1

REPORT INFORMATION
  Report Type: Report from Study
  Country: GB (occurrence: GB)
  Receive Date: 20160113
  Receipt Date: 20160113
  Transmission Date: 20160526
  Serious: Yes (Hospitalization, Other)
  Sender: FDA-Public Use
  Company Number: GB-ASTRAZENECA-2016SE01003

PATIENT
  Age: 64 Year
  Sex: Male

DRUGS (1)
  1. GOSERELIN [Suspect]
     Active Substance: GOSERELIN
     Indication: PROSTATE CANCER METASTATIC
     Route: 058

REACTIONS (5)
  - Fatigue [Unknown]
  - Sinus tachycardia [Unknown]
  - Blood alkaline phosphatase increased [Unknown]
  - C-reactive protein increased [Unknown]
  - Arthralgia [Unknown]
